FAERS Safety Report 11642893 (Version 1)
Quarter: 2015Q4

REPORT INFORMATION
  Report Type: Report from Study
  Country: BR (occurrence: BR)
  Receive Date: 20151020
  Receipt Date: 20151020
  Transmission Date: 20160304
  Serious: Yes (Other)
  Sender: FDA-Public Use
  Company Number: BR-ROCHE-1648156

PATIENT
  Sex: Male
  Weight: 52 kg

DRUGS (7)
  1. TOBRAMYCIN. [Concomitant]
     Active Substance: TOBRAMYCIN
  2. AZITHROMYCIN [Concomitant]
     Active Substance: AZITHROMYCIN ANHYDROUS
  3. VANNAIR [Concomitant]
     Active Substance: BUDESONIDE\FORMOTEROL FUMARATE DIHYDRATE
  4. AEROLIN [Concomitant]
     Active Substance: ALBUTEROL
  5. COLOMYCIN [Concomitant]
     Active Substance: COLISTIN
  6. PULMOZYME [Suspect]
     Active Substance: DORNASE ALFA
     Indication: CYSTIC FIBROSIS
     Route: 065
  7. BUSONID [Concomitant]
     Active Substance: BUDESONIDE

REACTIONS (1)
  - Lung disorder [Not Recovered/Not Resolved]
